FAERS Safety Report 5283776-3 (Version None)
Quarter: 2007Q1

REPORT INFORMATION
  Report Type: 
  Country: None (occurrence: None)
  Receive Date: 20061226
  Receipt Date: 20060419
  Transmission Date: 20070707
  Serious: Yes (Hospitalization)
  Sender: FDA-Public Use
  Company Number: 2006S1000099

PATIENT
  Age: 41 Year
  Sex: Female
  Weight: 60.0109 kg

DRUGS (5)
  1. SORIATANE [Suspect]
     Indication: DRUG USE FOR UNKNOWN INDICATION
     Dosage: 25 MG; PO
     Route: 048
  2. PLAVIX [Concomitant]
  3. ZYBAN [Concomitant]
  4. FONZYLANE [Concomitant]
  5. ASPEGIC /00002701/ [Concomitant]

REACTIONS (1)
  - ARTERIAL THROMBOSIS [None]
